FAERS Safety Report 11944960 (Version 1)
Quarter: 2016Q1

REPORT INFORMATION
  Report Type: Spontaneous
  Country: FR (occurrence: FR)
  Receive Date: 20160125
  Receipt Date: 20160125
  Transmission Date: 20160526
  Serious: Yes (Hospitalization, Other)
  Sender: FDA-Public Use
  Company Number: FR-PFIZER INC-2016029831

PATIENT
  Age: 75 Year
  Sex: Female

DRUGS (14)
  1. EUPANTOL [Suspect]
     Active Substance: PANTOPRAZOLE SODIUM
     Dosage: UNK
     Route: 042
     Dates: start: 20150317, end: 20150318
  2. METRONIDAZOLE. [Suspect]
     Active Substance: METRONIDAZOLE
     Dosage: 500 MG, ALTERNATE DAY (EVERY TWO DAYS)
     Route: 048
     Dates: start: 20150323, end: 20150327
  3. ZECLAR [Suspect]
     Active Substance: CLARITHROMYCIN
     Dosage: 1 DF, ALTERNATE DAY (EVERY TWO DAYS)
     Route: 048
     Dates: start: 20150323, end: 20150327
  4. PRADAXA [Concomitant]
     Active Substance: DABIGATRAN ETEXILATE MESYLATE
     Dosage: UNK
  5. BRIMONIDINE [Concomitant]
     Active Substance: BRIMONIDINE TARTRATE
     Dosage: UNK
  6. OFLOXACIN. [Concomitant]
     Active Substance: OFLOXACIN
     Indication: EAR INFECTION
     Dosage: UNK
     Dates: start: 201502
  7. BISOPROLOL [Concomitant]
     Active Substance: BISOPROLOL
     Dosage: UNK
  8. DUOTRAV [Concomitant]
     Active Substance: TIMOLOL MALEATE\TRAVOPROST
     Dosage: UNK
  9. METFORMIN [Concomitant]
     Active Substance: METFORMIN HYDROCHLORIDE
     Dosage: UNK
  10. AMOXICILLIN CLAVULANIC ACID [Concomitant]
     Active Substance: AMOXICILLIN\CLAVULANIC ACID
     Dosage: UNK
     Dates: start: 20150302, end: 20150309
  11. LOSARTAN + HIDROCLOROTIAZIDA /01625701/ [Concomitant]
     Dosage: UNK
  12. INEXIUM /01479303/ [Suspect]
     Active Substance: ESOMEPRAZOLE
     Indication: ANTIBIOTIC THERAPY
     Dosage: 40 MG, DAILY
     Route: 048
     Dates: start: 20150319
  13. AUGMENTIN [Concomitant]
     Active Substance: AMOXICILLIN\CLAVULANATE POTASSIUM
     Dosage: UNK
     Route: 048
     Dates: start: 201502
  14. AMOXICILLIN. [Suspect]
     Active Substance: AMOXICILLIN
     Dosage: UNK
     Route: 048
     Dates: start: 20150302, end: 20150323

REACTIONS (2)
  - Tubulointerstitial nephritis [Unknown]
  - Renal failure [Unknown]

NARRATIVE: CASE EVENT DATE: 20150323
